FAERS Safety Report 18857089 (Version 2)
Quarter: 2021Q1

REPORT INFORMATION
  Report Type: Spontaneous
  Country: US (occurrence: US)
  Receive Date: 20210208
  Receipt Date: 20210303
  Transmission Date: 20210420
  Serious: Yes (Hospitalization, Disabling, Other)
  Sender: FDA-Public Use
  Company Number: US-GLENMARK PHARMACEUTICALS-2021GMK051917

PATIENT
  Age: 69 Year
  Sex: Male

DRUGS (8)
  1. NORTRIPTYLINE [Concomitant]
     Active Substance: NORTRIPTYLINE
     Indication: PRODUCT USED FOR UNKNOWN INDICATION
     Dosage: UNK
     Route: 065
  2. PROPRANOLOL [Concomitant]
     Active Substance: PROPRANOLOL HYDROCHLORIDE
     Indication: PRODUCT USED FOR UNKNOWN INDICATION
     Dosage: UNK
     Route: 065
  3. TOPIRAMATE. [Concomitant]
     Active Substance: TOPIRAMATE
     Indication: PRODUCT USED FOR UNKNOWN INDICATION
     Dosage: UNK
     Route: 065
  4. LIDOCAINE. [Concomitant]
     Active Substance: LIDOCAINE
     Indication: PAIN MANAGEMENT
     Dosage: UNK
     Route: 061
  5. GABAPENTIN. [Suspect]
     Active Substance: GABAPENTIN
     Dosage: 900 MILLIGRAM, TID (8 HOURS)
     Route: 065
  6. GABAPENTIN. [Suspect]
     Active Substance: GABAPENTIN
     Indication: NEUROPATHY PERIPHERAL
     Dosage: 2400 MILLIGRAM, QID
     Route: 065
  7. GABAPENTIN. [Suspect]
     Active Substance: GABAPENTIN
     Dosage: 600 MILLIGRAM, TID (DRUG RESTARTED)
     Route: 065
  8. GABAPENTIN. [Suspect]
     Active Substance: GABAPENTIN
     Dosage: 800 MILLIGRAM, TID
     Route: 065

REACTIONS (15)
  - Action tremor [Recovered/Resolved]
  - Myokymia [Recovered/Resolved]
  - Toxicity to various agents [Recovered/Resolved]
  - Drug level above therapeutic [Recovered/Resolved]
  - Diplopia [Recovered/Resolved]
  - Prescribed overdose [Unknown]
  - Fall [Recovered/Resolved]
  - Muscle contractions involuntary [Recovered/Resolved]
  - Muscle spasms [Recovered/Resolved]
  - Binocular eye movement disorder [Recovered/Resolved]
  - Myoclonus [Recovered/Resolved]
  - Pain in extremity [Recovered/Resolved]
  - Dyskinesia [Recovered/Resolved]
  - Walking disability [Recovered/Resolved]
  - Tremor [Recovered/Resolved]
